FAERS Safety Report 7899886-8 (Version None)
Quarter: 2011Q4

REPORT INFORMATION
  Report Type: 
  Country: None (occurrence: None)
  Receive Date: 20111107
  Receipt Date: 20111003
  Transmission Date: 20120403
  Serious: No
  Sender: FDA-Public Use
  Company Number: US-AMGEN-USASP2011046406

PATIENT
  Age: 53 Year
  Sex: Female

DRUGS (9)
  1. CYMBALTA [Concomitant]
  2. MELOXICAM [Concomitant]
     Dosage: UNK
  3. ENBREL [Suspect]
     Indication: RHEUMATOID ARTHRITIS
     Dosage: 50 MG, QWK
     Route: 058
     Dates: start: 20100210, end: 20110701
  4. ARTHROTEC [Concomitant]
     Dosage: UNK
  5. FOLIC ACID [Concomitant]
     Dosage: UNK
  6. OPANA [Concomitant]
     Dosage: UNK
  7. METHOTREXATE [Suspect]
     Dosage: 1 MG, QWK
  8. ENBREL [Suspect]
     Indication: FIBROMYALGIA
  9. HUMIRA [Concomitant]
     Dosage: UNK

REACTIONS (6)
  - OEDEMA PERIPHERAL [None]
  - RHEUMATOID ARTHRITIS [None]
  - PARAESTHESIA [None]
  - FEELING ABNORMAL [None]
  - ALOPECIA [None]
  - BURNING SENSATION [None]
